FAERS Safety Report 8836620 (Version 1)
Quarter: 2012Q4

REPORT INFORMATION
  Report Type: Spontaneous
  Country: US (occurrence: None)
  Receive Date: 20121010
  Receipt Date: 20121010
  Transmission Date: 20130627
  Serious: Yes (Disabling, Other)
  Sender: FDA-Public Use
  Company Number: 2012AP003288

PATIENT
  Age: 33 Year
  Sex: Female

DRUGS (8)
  1. TRAMADOL HYDROCHLORIDE TABLETS [Suspect]
     Indication: EPILEPSY
  2. TRAMADOL HYDROCHLORIDE TABLETS [Suspect]
     Indication: EPILEPSY
  3. TRAMADOL HYDROCHLORIDE TABLETS [Suspect]
     Indication: EPILEPSY
  4. SERTRALINE HYDROCHLORIDE [Suspect]
     Indication: DEPRESSION
  5. LAMOTRIGINE [Suspect]
  6. LAMOTRIGINE [Suspect]
  7. VENLAFAXINE [Suspect]
     Indication: DEPRESSION
  8. PHENYTOIN [Suspect]
     Indication: EPILEPSY

REACTIONS (4)
  - Convulsion [None]
  - Drug abuse [None]
  - Depression [None]
  - Drug interaction [None]
